FAERS Safety Report 20684531 (Version 1)
Quarter: 2022Q2

REPORT INFORMATION
  Report Type: Spontaneous
  Country: US (occurrence: None)
  Receive Date: 20220405
  Receipt Date: 20220405
  Transmission Date: 20220720
  Serious: No
  Sender: FDA-Public Use
  Company Number: None

PATIENT
  Age: 35 Year
  Sex: Female

DRUGS (1)
  1. MAKENA [Suspect]
     Active Substance: HYDROXYPROGESTERONE CAPROATE
     Indication: High risk pregnancy
     Dosage: OTHER STRENGTH : 275MG/1.1M;?OTHER QUANTITY : 275MG/1.1M;?FREQUENCY : WEEKLY;?
     Route: 058
     Dates: start: 202202

REACTIONS (5)
  - Adverse event [None]
  - Adverse drug reaction [None]
  - Peripheral swelling [None]
  - Rash [None]
  - Inflammation [None]

NARRATIVE: CASE EVENT DATE: 20220224
